FAERS Safety Report 8376783-5 (Version None)
Quarter: 2012Q2

REPORT INFORMATION
  Report Type: 
  Country: None (occurrence: None)
  Receive Date: 20120522
  Receipt Date: 20120425
  Transmission Date: 20120825
  Serious: No
  Sender: FDA-Public Use
  Company Number: US-BRISTOL-MYERS SQUIBB COMPANY-16450124

PATIENT
  Age: 66 Year
  Sex: Male

DRUGS (1)
  1. ONGLYZA [Suspect]
     Indication: TYPE 2 DIABETES MELLITUS
     Route: 048
     Dates: start: 20110927, end: 20111028

REACTIONS (3)
  - CYSTITIS NONINFECTIVE [None]
  - POLLAKIURIA [None]
  - DRUG INEFFECTIVE [None]
